FAERS Safety Report 10625370 (Version 1)
Quarter: 2014Q4

REPORT INFORMATION
  Report Type: Spontaneous
  Country: DE (occurrence: DE)
  Receive Date: 20141204
  Receipt Date: 20141204
  Transmission Date: 20150529
  Serious: Yes (Life-Threatening, Other)
  Sender: FDA-Public Use
  Company Number: DE-BRISTOL-MYERS SQUIBB COMPANY-21670989

PATIENT
  Age: 81 Year
  Sex: Female

DRUGS (2)
  1. APIXABAN [Suspect]
     Active Substance: APIXABAN
     Indication: CEREBROVASCULAR ACCIDENT PROPHYLAXIS
     Dosage: 2.5 MG, BID
     Route: 048
  2. MARCUMAR [Suspect]
     Active Substance: PHENPROCOUMON

REACTIONS (6)
  - Acute kidney injury [Unknown]
  - Anaemia [Unknown]
  - Drug administration error [Unknown]
  - Cephalhaematoma [Unknown]
  - Epistaxis [Unknown]
  - Syncope [Unknown]

NARRATIVE: CASE EVENT DATE: 20140429
